FAERS Safety Report 15693604 (Version 3)
Quarter: 2019Q1

REPORT INFORMATION
  Report Type: Spontaneous
  Country: JP (occurrence: JP)
  Receive Date: 20181206
  Receipt Date: 20190207
  Transmission Date: 20190417
  Serious: Yes (Other)
  Sender: FDA-Public Use
  Company Number: JP-EISAI MEDICAL RESEARCH-EC-2018-041291

PATIENT
  Age: 82 Year
  Sex: Male
  Weight: 70 kg

DRUGS (5)
  1. KALIAID [Concomitant]
     Active Substance: CALCIUM POLYSTYRENE SULFONATE
     Indication: PRODUCT USED FOR UNKNOWN INDICATION
     Dosage: UNKNOWN
     Route: 065
     Dates: end: 20180603
  2. LENVIMA [Suspect]
     Active Substance: LENVATINIB
     Indication: HEPATOCELLULAR CARCINOMA
     Route: 048
     Dates: start: 20180517
  3. ALDACTONE A [Concomitant]
     Active Substance: SPIRONOLACTONE
     Indication: ASCITES
     Dosage: UNKNOWN
     Route: 065
     Dates: start: 20180427, end: 20180603
  4. LASIX [Concomitant]
     Active Substance: FUROSEMIDE
     Indication: ASCITES
     Dosage: UNKNOWN
     Route: 065
     Dates: start: 20180308
  5. KALIAID [Concomitant]
     Active Substance: CALCIUM POLYSTYRENE SULFONATE
     Dosage: UNKNOWN
     Route: 065
     Dates: start: 2018

REACTIONS (3)
  - Tumour lysis syndrome [Recovered/Resolved]
  - Arrhythmia [Recovered/Resolved]
  - Hyperkalaemia [Recovered/Resolved]

NARRATIVE: CASE EVENT DATE: 20180603
